FAERS Safety Report 18441527 (Version 6)
Quarter: 2023Q2

REPORT INFORMATION
  Report Type: Spontaneous
  Country: US (occurrence: US)
  Receive Date: 20201029
  Receipt Date: 20230406
  Transmission Date: 20230722
  Serious: No
  Sender: FDA-Public Use
  Company Number: US-PFIZER INC-2020417317

PATIENT
  Age: 82 Year
  Sex: Male

DRUGS (1)
  1. TOVIAZ [Suspect]
     Active Substance: FESOTERODINE FUMARATE
     Indication: Bladder disorder
     Dosage: UNK

REACTIONS (4)
  - Hypoacusis [Unknown]
  - Musculoskeletal disorder [Unknown]
  - Dysgraphia [Unknown]
  - Circumstance or information capable of leading to medication error [Unknown]
